FAERS Safety Report 10016479 (Version 7)
Quarter: 2015Q1

REPORT INFORMATION
  Report Type: Report from Study
  Country: CA (occurrence: CA)
  Receive Date: 20140317
  Receipt Date: 20150310
  Transmission Date: 20150720
  Serious: Yes (Death, Other)
  Sender: FDA-Public Use
  Company Number: PHHY2014CA031457

PATIENT
  Age: 72 Year
  Sex: Male

DRUGS (1)
  1. SANDOSTATIN LAR DEPOT [Suspect]
     Active Substance: OCTREOTIDE ACETATE
     Indication: NEUROENDOCRINE TUMOUR
     Dosage: 30 MG, QMO
     Route: 030
     Dates: start: 20131111, end: 20141105

REACTIONS (16)
  - Mass [Unknown]
  - Weight decreased [Unknown]
  - Pallor [Unknown]
  - Nausea [Unknown]
  - Cardiac neoplasm unspecified [Unknown]
  - Terminal state [Unknown]
  - Decreased appetite [Unknown]
  - Muscle atrophy [Unknown]
  - Fatigue [Unknown]
  - Vomiting [Unknown]
  - Metastases to liver [Unknown]
  - Metastases to central nervous system [Unknown]
  - Asthenia [Unknown]
  - Death [Fatal]
  - General physical health deterioration [Unknown]
  - Malaise [Unknown]

NARRATIVE: CASE EVENT DATE: 2014
